FAERS Safety Report 6369688-2 (Version None)
Quarter: 2009Q3

REPORT INFORMATION
  Report Type: 
  Country: None (occurrence: None)
  Receive Date: 20090923
  Receipt Date: 20090913
  Transmission Date: 20100115
  Serious: Yes (Other)
  Sender: FDA-Public Use
  Company Number: US-PFIZER INC-2009248461

PATIENT
  Sex: Female
  Weight: 177 kg

DRUGS (3)
  1. DEPO-PROVERA [Suspect]
     Indication: CONTRACEPTION
  2. COGENTIN [Concomitant]
     Dosage: UNK
  3. RISPERDAL [Concomitant]
     Dosage: 4 MG, UNK

REACTIONS (5)
  - AMENORRHOEA [None]
  - CARDIAC FAILURE CONGESTIVE [None]
  - POLYCYSTIC OVARIES [None]
  - SWELLING [None]
  - WEIGHT INCREASED [None]
